FAERS Safety Report 5197894-1 (Version None)
Quarter: 2007Q1

REPORT INFORMATION
  Report Type: 
  Country: None (occurrence: None)
  Receive Date: 20070103
  Receipt Date: 20061222
  Transmission Date: 20070707
  Serious: Yes (Other)
  Sender: FDA-Public Use
  Company Number: NL-ELI_LILLY_AND_COMPANY-NL200612001877

PATIENT
  Age: 41 Year
  Sex: Male
  Weight: 81.2 kg

DRUGS (5)
  1. SOMATROPIN [Suspect]
     Indication: GROWTH HORMONE DEFICIENCY
     Dosage: 0.4 MG, DAILY (1/D)
     Route: 058
     Dates: start: 19960618, end: 20061115
  2. ANDROGEL [Concomitant]
     Indication: SECONDARY HYPOGONADISM
     Dosage: UNK, UNK
     Dates: start: 20061003
  3. HYDROCORTISON [Concomitant]
     Indication: ADRENAL INSUFFICIENCY
     Dosage: UNK, UNK
     Dates: start: 19960101
  4. LEVOTHYROXINE SODIUM [Concomitant]
     Indication: SECONDARY HYPOTHYROIDISM
     Dosage: UNK, UNK
     Dates: start: 19960101
  5. ZOCOR [Concomitant]
     Indication: HYPERCHOLESTEROLAEMIA
     Dates: start: 20001022

REACTIONS (1)
  - PITUITARY TUMOUR BENIGN [None]
